FAERS Safety Report 4680731-9 (Version None)
Quarter: 2005Q2

REPORT INFORMATION
  Report Type: 
  Country: None (occurrence: None)
  Receive Date: 20050603
  Receipt Date: 20050519
  Transmission Date: 20051028
  Serious: Yes (Hospitalization)
  Sender: FDA-Public Use
  Company Number: FR-BOEHRINGER INGELHEIM PHARMACEUTICALS, INC.-2005-FF-00356FF

PATIENT
  Age: 64 Year
  Sex: Male
  Weight: 82 kg

DRUGS (6)
  1. JOSIR [Suspect]
     Route: 048
     Dates: end: 20050326
  2. NOROXIN [Concomitant]
     Indication: PROSTATITIS
     Route: 048
     Dates: start: 20050312, end: 20050313
  3. BEFIZAL [Concomitant]
     Route: 048
     Dates: end: 20050329
  4. DI-ANTALVIC [Concomitant]
     Dosage: 6 TA DAILY
     Route: 048
  5. TAVANIC [Concomitant]
     Dates: start: 20050314, end: 20050319
  6. GENTAMICIN [Concomitant]
     Dates: start: 20050314, end: 20050317

REACTIONS (11)
  - ARTHRALGIA [None]
  - ASPARTATE AMINOTRANSFERASE INCREASED [None]
  - BLOOD CREATINE PHOSPHOKINASE INCREASED [None]
  - DIARRHOEA [None]
  - HEPATIC STEATOSIS [None]
  - JOINT EFFUSION [None]
  - LICHENOID KERATOSIS [None]
  - LUNG DISORDER [None]
  - MYALGIA [None]
  - PYREXIA [None]
  - RASH MACULO-PAPULAR [None]
